FAERS Safety Report 12552812 (Version 3)
Quarter: 2016Q3

REPORT INFORMATION
  Report Type: Spontaneous
  Country: TW (occurrence: TW)
  Receive Date: 20160713
  Receipt Date: 20160810
  Transmission Date: 20161109
  Serious: Yes (Other)
  Sender: FDA-Public Use
  Company Number: TW-PFIZER INC-2016336032

PATIENT
  Age: 38 Year
  Sex: Male

DRUGS (1)
  1. VFEND [Suspect]
     Active Substance: VORICONAZOLE
     Indication: FUNGAL INFECTION
     Dosage: 300 OR 400 MG, Q12H
     Route: 042

REACTIONS (2)
  - Hallucination, visual [Recovered/Resolved]
  - Altered state of consciousness [Recovered/Resolved]
